FAERS Safety Report 10864392 (Version 1)
Quarter: 2015Q1

REPORT INFORMATION
  Report Type: Spontaneous
  Country: US (occurrence: US)
  Receive Date: 20150224
  Receipt Date: 20150224
  Transmission Date: 20150721
  Serious: No
  Sender: FDA-Public Use
  Company Number: US-009507513-1502USA006566

PATIENT
  Sex: Male

DRUGS (3)
  1. AMOXICILLIN. [Concomitant]
     Active Substance: AMOXICILLIN
     Indication: SINUSITIS
     Dosage: UNK, UNKNOWN
  2. AFRIN [Suspect]
     Active Substance: OXYMETAZOLINE
     Indication: SINUSITIS
     Dosage: UNK, UNKNOWN
     Route: 045
  3. AFRIN [Suspect]
     Active Substance: OXYMETAZOLINE
     Dosage: 2 DF, BID
     Route: 045
     Dates: start: 20150219, end: 20150219

REACTIONS (4)
  - Inappropriate schedule of drug administration [Unknown]
  - Drug prescribing error [Unknown]
  - Incorrect drug administration duration [Unknown]
  - Off label use [Unknown]
